FAERS Safety Report 15736157 (Version 2)
Quarter: 2018Q4

REPORT INFORMATION
  Report Type: Report from Study
  Country: None (occurrence: US)
  Receive Date: 20181218
  Receipt Date: 20181225
  Transmission Date: 20190205
  Serious: Yes (Hospitalization)
  Sender: FDA-Public Use
  Company Number: US-ABBVIE-18K-163-2593963-00

PATIENT
  Age: 27 Year
  Sex: Female
  Weight: 61.29 kg

DRUGS (6)
  1. PRENATAL WITH FOLIC ACID [Concomitant]
     Indication: VITAMIN SUPPLEMENTATION
  2. VITAMIN B12 [Concomitant]
     Active Substance: CYANOCOBALAMIN
     Indication: VITAMIN SUPPLEMENTATION
  3. IRON [Concomitant]
     Active Substance: IRON
     Indication: ANAEMIA
  4. HUMIRA [Suspect]
     Active Substance: ADALIMUMAB
     Indication: CROHN^S DISEASE
     Route: 058
     Dates: start: 201605, end: 201810
  5. ORTHO CYCLEN [Concomitant]
     Active Substance: ETHINYL ESTRADIOL\NORGESTIMATE
     Indication: CONTRACEPTION
  6. VITAMIN D [Concomitant]
     Active Substance: CHOLECALCIFEROL
     Indication: VITAMIN SUPPLEMENTATION

REACTIONS (10)
  - Ureteric injury [Recovering/Resolving]
  - Crohn^s disease [Recovering/Resolving]
  - Surgical failure [Unknown]
  - Post procedural swelling [Recovering/Resolving]
  - Ileal stenosis [Recovered/Resolved]
  - Cystitis noninfective [Recovering/Resolving]
  - Procedural pain [Recovering/Resolving]
  - Small intestinal obstruction [Recovered/Resolved]
  - Procedural complication [Recovering/Resolving]
  - Intestinal prolapse [Recovered/Resolved]

NARRATIVE: CASE EVENT DATE: 201810
